FAERS Safety Report 6793987-3 (Version None)
Quarter: 2010Q2

REPORT INFORMATION
  Report Type: 
  Country: None (occurrence: None)
  Receive Date: 20100624
  Receipt Date: 20090630
  Transmission Date: 20101027
  Serious: Yes (Hospitalization, Other)
  Sender: FDA-Public Use
  Company Number: CH-PFIZER INC-2009227451

PATIENT
  Sex: Male

DRUGS (3)
  1. RELPAX [Suspect]
     Indication: MIGRAINE
     Dosage: 40 MG, AS NEEDED
     Route: 048
     Dates: start: 20090520, end: 20090520
  2. SIBELIUM [Concomitant]
     Dosage: 5 MG, 1X/DAY
     Dates: start: 20090317, end: 20090526
  3. TOPAMAX [Concomitant]
     Dosage: 25 MG, 1X/DAY
     Dates: start: 20090527

REACTIONS (2)
  - HYPERKINESIA [None]
  - MEMORY IMPAIRMENT [None]
